FAERS Safety Report 8890724 (Version 1)
Quarter: 2012Q4

REPORT INFORMATION
  Report Type: Report from Study
  Country: JP (occurrence: JP)
  Receive Date: 20121107
  Receipt Date: 20121107
  Transmission Date: 20130627
  Serious: Yes (Death, Hospitalization, Other)
  Sender: FDA-Public Use
  Company Number: JP-ROCHE-1151941

PATIENT
  Age: 78 Year
  Sex: Male

DRUGS (7)
  1. BEVACIZUMAB [Suspect]
     Indication: LUNG ADENOCARCINOMA STAGE IV
     Route: 065
     Dates: start: 20120305
  2. PEMETREXED [Suspect]
     Indication: LUNG ADENOCARCINOMA STAGE IV
     Route: 065
     Dates: start: 20120305
  3. CARBOPLATIN [Suspect]
     Indication: LUNG ADENOCARCINOMA STAGE IV
     Route: 065
     Dates: start: 20120305
  4. ADALAT [Concomitant]
  5. ANPLAG [Concomitant]
  6. PANVITAN [Concomitant]
     Route: 065
     Dates: start: 20120301, end: 20120719
  7. METHYCOBAL [Concomitant]
     Route: 065
     Dates: start: 20120301, end: 20120719

REACTIONS (3)
  - Interstitial lung disease [Fatal]
  - Platelet count decreased [Not Recovered/Not Resolved]
  - Haemoglobin decreased [Not Recovered/Not Resolved]
